FAERS Safety Report 9030534 (Version 3)
Quarter: 2013Q2

REPORT INFORMATION
  Report Type: Spontaneous
  Country: US (occurrence: US)
  Receive Date: 20130122
  Receipt Date: 20130430
  Transmission Date: 20140414
  Serious: Yes (Hospitalization)
  Sender: FDA-Public Use
  Company Number: US-PFIZER INC-2013024640

PATIENT
  Age: 77 Year
  Sex: Female

DRUGS (17)
  1. CHANTIX [Suspect]
     Indication: SMOKING CESSATION THERAPY
     Dosage: 0.5 MG, 1X/DAY (QD X 3DAY)
     Route: 048
     Dates: start: 20120509
  2. CHANTIX [Suspect]
     Dosage: 0.5 MG, 2X/DAY (BID)
     Route: 048
  3. POLYETHYLENE GLYCOL [Concomitant]
     Indication: CONSTIPATION
     Dosage: UNK, (MIX 1 CAPFUL IN 8 OUNCES OF WATER AND DRINK AT BEDTIME AS NEEDED)
     Route: 048
     Dates: start: 20121107
  4. PROAIR HFA [Concomitant]
     Dosage: UNK, (INHALE 1 TO 2 PUFFS BY MOUTH EVERY 4-6 HOURS AS NEEDED AND AS DIRECTED)
     Route: 048
     Dates: start: 20130208
  5. SPIRIVA HANDIHALER [Concomitant]
     Dosage: 18 UG, 1X/DAY (INHALE CONTENTS OF 1 CAPSULE ONCE DALLY)
     Dates: start: 20120104
  6. AMLODIPINE BESYLATE [Concomitant]
     Indication: ESSENTIAL HYPERTENSION
     Dosage: 10 MG, 1X/DAY (1 TABLET BY MOUTH EVERY DAY)
     Route: 048
     Dates: start: 20120104
  7. LISINOPRIL [Concomitant]
     Dosage: 2.5 MG, 1X/DAY (1 TABLET BY MOUTH EVERY DAY,)
     Route: 048
     Dates: start: 20120104
  8. ADVAIR DISKUS [Concomitant]
     Indication: CHRONIC OBSTRUCTIVE PULMONARY DISEASE
     Dosage: 250-50 MCG, (INHALE 1 PUFF TWICE DAILY)
     Dates: start: 20120104
  9. ALBUTEROL SULFATE [Concomitant]
     Indication: WHEEZING
     Dosage: 0.083 %,  (2.5 MG/3ML, 1 UNIT DOSE EVERY 4-6 HOURS AS NEEDED FOR WHEEZING)
     Dates: start: 20120326
  10. ALBUTEROL SULFATE [Concomitant]
     Indication: CHRONIC OBSTRUCTIVE PULMONARY DISEASE
  11. IPRATROPIUM BROMIDE [Concomitant]
     Indication: CHRONIC OBSTRUCTIVE PULMONARY DISEASE
     Dosage: 0.02 %, UNK
  12. VENTOLIN HFA [Concomitant]
     Indication: CHRONIC OBSTRUCTIVE PULMONARY DISEASE
     Dosage: 108 (90 BASE), (INHALE 2 PUFFS EVERY 4-6 HOURS PRN RESCUE INHALER)
     Dates: start: 20130311
  13. SIMVASTATIN [Concomitant]
     Indication: DYSLIPIDAEMIA
     Dosage: 20 MG, 1X/DAY (1 TABLET BY MOUTH EVERY DAY)
     Route: 048
     Dates: start: 20120104
  14. ALEVE [Concomitant]
     Indication: MUSCLE STRAIN
     Dosage: 220 MG, AS NEEDED (1 TABLET EVERY 12 HOURS AS NEEDED)
     Route: 048
     Dates: start: 20121115
  15. FUROSEMIDE [Concomitant]
     Indication: PULMONARY HYPERTENSION
     Dosage: 40 MG, 1X/DAY (1 AND 1/2 DAILY)
     Route: 048
     Dates: start: 20120629
  16. GLIPIZIDE [Concomitant]
     Indication: DIABETIC NEUROPATHY
     Dosage: 5 MG, 2X/DAY (1 TABLET BY MOUTH TWICE A DAY)
     Route: 048
     Dates: start: 20120104
  17. METFORMIN HYDROCHLORIDE [Concomitant]
     Indication: DIABETIC NEUROPATHY
     Dosage: 500 MG, 2X/DAY (1 TABLET TWICE DAILY WITH FOOD)
     Route: 048
     Dates: start: 20120104

REACTIONS (1)
  - Chronic obstructive pulmonary disease [Unknown]
